FAERS Safety Report 11692717 (Version 1)
Quarter: 2015Q4

REPORT INFORMATION
  Report Type: Spontaneous
  Country: SA (occurrence: SA)
  Receive Date: 20151103
  Receipt Date: 20151103
  Transmission Date: 20160304
  Serious: Yes (Death)
  Sender: FDA-Public Use
  Company Number: SA-SA-2015SA152875

PATIENT
  Age: 52 Year
  Sex: Male
  Weight: 85 kg

DRUGS (2)
  1. ZALTRAP [Suspect]
     Active Substance: ZIV-AFLIBERCEPT
     Route: 065
  2. ZALTRAP [Suspect]
     Active Substance: ZIV-AFLIBERCEPT
     Route: 065

REACTIONS (4)
  - Metastases to lung [Fatal]
  - Disease progression [Fatal]
  - Metastases to liver [Fatal]
  - Respiratory failure [Fatal]

NARRATIVE: CASE EVENT DATE: 201411
